FAERS Safety Report 17496005 (Version 1)
Quarter: 2020Q1

REPORT INFORMATION
  Report Type: Spontaneous
  Country: CA (occurrence: CA)
  Receive Date: 20200304
  Receipt Date: 20200304
  Transmission Date: 20200409
  Serious: No
  Sender: FDA-Public Use
  Company Number: None

PATIENT
  Age: 21 Year
  Sex: Female

DRUGS (2)
  1. LA ROCH-POSAY EFFACLAR CLEANSER [Concomitant]
  2. AKLIEF [Suspect]
     Active Substance: TRIFAROTENE
     Indication: ACNE
     Dates: start: 20200227

REACTIONS (3)
  - Dry skin [None]
  - Skin exfoliation [None]
  - Erythema [None]

NARRATIVE: CASE EVENT DATE: 20200302
